FAERS Safety Report 19397147 (Version 1)
Quarter: 2021Q2

REPORT INFORMATION
  Report Type: Other
  Country: IT (occurrence: IT)
  Receive Date: 20210609
  Receipt Date: 20210609
  Transmission Date: 20210717
  Serious: Yes (Death, Other)
  Sender: FDA-Public Use
  Company Number: IT-ROCHE-2841820

PATIENT

DRUGS (6)
  1. CAPECITABINE. [Suspect]
     Active Substance: CAPECITABINE
     Indication: RECTAL CANCER
     Dosage: 825 MG/MQ
     Route: 065
  2. CISPLATIN. [Suspect]
     Active Substance: CISPLATIN
     Indication: RECTAL CANCER
     Dosage: 60 MG/MQ, DIE 1 AND 29
     Route: 065
  3. CAPECITABINE. [Suspect]
     Active Substance: CAPECITABINE
     Dosage: 1300 MG/MQ/DIE, IN A CHRONOMODULATED SCHEMA, 3 TIMES A DAY [25% OF THE DAILY DOSE AT 8 A.M., 25% AT
     Route: 065
  4. 5?FU [Suspect]
     Active Substance: FLUOROURACIL
     Indication: RECTAL CANCER
     Dosage: 1,000 MG/MQ, 24 H?CONTINOUS INTRAVENOUS INFUSION, DIE 1?4 AND 29?32
     Route: 042
  5. LEUCOVORIN. [Suspect]
     Active Substance: LEUCOVORIN
     Indication: RECTAL CANCER
     Dosage: 750 MG/MQ?1000 MG/MQ, 24 H?CONTINOUS INTRAVENOUS INFUSION, DIE 1?4
     Route: 042
  6. OXALIPLATIN. [Suspect]
     Active Substance: OXALIPLATIN
     Indication: RECTAL CANCER
     Dosage: 130 MG/MQ PER DAY, 2?H INFUSION ON DAYS 1, 19, AND 38
     Route: 042

REACTIONS (14)
  - Cerebrovascular accident [Fatal]
  - Hypokalaemia [Unknown]
  - Cardiac arrest [Fatal]
  - Anaemia [Unknown]
  - Ill-defined disorder [Unknown]
  - Thrombocytopenia [Unknown]
  - Diarrhoea [Unknown]
  - Myocardial infarction [Fatal]
  - Neutropenia [Unknown]
  - Leukopenia [Unknown]
  - Urinary tract toxicity [Unknown]
  - Gastrointestinal toxicity [Unknown]
  - Skin toxicity [Unknown]
  - Proctitis [Unknown]
